FAERS Safety Report 6329445-X (Version None)
Quarter: 2009Q3

REPORT INFORMATION
  Report Type: 
  Country: None (occurrence: None)
  Receive Date: 20090826
  Receipt Date: 20090819
  Transmission Date: 20100115
  Serious: Yes (Other)
  Sender: FDA-Public Use
  Company Number: B0589446A

PATIENT
  Sex: Male

DRUGS (1)
  1. REQUIP [Suspect]
     Indication: PARKINSON'S DISEASE
     Dosage: 2MG PER DAY
     Route: 048

REACTIONS (2)
  - MALAISE [None]
  - MEDICATION ERROR [None]
